FAERS Safety Report 12179267 (Version 1)
Quarter: 2016Q1

REPORT INFORMATION
  Report Type: Spontaneous
  Country: US (occurrence: US)
  Receive Date: 20160315
  Receipt Date: 20160315
  Transmission Date: 20160526
  Serious: No
  Sender: FDA-Public Use
  Company Number: US-WARNER CHILCOTT, LLC-1049045

PATIENT
  Sex: Female

DRUGS (4)
  1. VITAMIN B NOS [Concomitant]
     Active Substance: VITAMIN B
  2. NABUMETONE. [Concomitant]
     Active Substance: NABUMETONE
  3. ESTRACE [Suspect]
     Active Substance: ESTRADIOL
     Route: 067
  4. VITAMIN D [Concomitant]
     Active Substance: CHOLECALCIFEROL

REACTIONS (4)
  - Vulvovaginal dryness [Unknown]
  - Genital hypoaesthesia [Unknown]
  - Drug ineffective [Unknown]
  - Hot flush [Unknown]
